FAERS Safety Report 7410435-0 (Version None)
Quarter: 2011Q2

REPORT INFORMATION
  Report Type: 
  Country: None (occurrence: None)
  Receive Date: 20110413
  Receipt Date: 20110401
  Transmission Date: 20111010
  Serious: Yes (Other)
  Sender: FDA-Public Use
  Company Number: AR-AMGEN-ARGSP2011013601

PATIENT
  Age: 49 Year
  Sex: Female
  Weight: 45 kg

DRUGS (1)
  1. ENBREL [Suspect]
     Indication: RHEUMATOID ARTHRITIS
     Dosage: 50 MG, WEEKLY
     Route: 058
     Dates: start: 20110101

REACTIONS (3)
  - ERYSIPELAS [None]
  - ALOPECIA [None]
  - NODULE [None]
